FAERS Safety Report 9353864 (Version 1)
Quarter: 2013Q2

REPORT INFORMATION
  Report Type: Spontaneous
  Country: IT (occurrence: IT)
  Receive Date: 20130618
  Receipt Date: 20130618
  Transmission Date: 20140414
  Serious: Yes (Other)
  Sender: FDA-Public Use
  Company Number: IT-TEVA-413373USA

PATIENT
  Age: 60 Year
  Sex: Female

DRUGS (3)
  1. LEVACT [Suspect]
     Indication: NON-HODGKIN^S LYMPHOMA
     Dosage: 2.5 MG/ML
     Route: 042
     Dates: start: 20130321, end: 20130322
  2. ALLOPURINOL [Concomitant]
     Dosage: 300 MILLIGRAM DAILY;
  3. GLICONORM [Concomitant]
     Dosage: 5MG + 500MG; 2 DOSAGE FORMS PER DAY

REACTIONS (1)
  - Deep vein thrombosis [Recovered/Resolved]
